FAERS Safety Report 21238098 (Version 2)
Quarter: 2022Q3

REPORT INFORMATION
  Report Type: Spontaneous
  Country: US (occurrence: None)
  Receive Date: 20220822
  Receipt Date: 20220826
  Transmission Date: 20221027
  Serious: No
  Sender: FDA-Public Use
  Company Number: 2022A262680

PATIENT
  Sex: Male
  Weight: 63.5 kg

DRUGS (2)
  1. BUDESONIDE\FORMOTEROL\GLYCOPYRRONIUM [Suspect]
     Active Substance: BUDESONIDE\FORMOTEROL\GLYCOPYRRONIUM
     Indication: Chronic obstructive pulmonary disease
     Dosage: 160/9/4.8MCG 2 PUFFS,TWO TIMES A DAY.
     Route: 055
  2. BUDESONIDE\FORMOTEROL\GLYCOPYRRONIUM [Suspect]
     Active Substance: BUDESONIDE\FORMOTEROL\GLYCOPYRRONIUM
     Indication: Asthma
     Dosage: 160/9/4.8MCG 2 PUFFS,TWO TIMES A DAY.
     Route: 055

REACTIONS (7)
  - Nocturia [Unknown]
  - Drug ineffective [Unknown]
  - Memory impairment [Unknown]
  - Single functional kidney [Unknown]
  - Middle insomnia [Unknown]
  - Device delivery system issue [Unknown]
  - Product use issue [Unknown]
